FAERS Safety Report 8534833 (Version 3)
Quarter: 2013Q3

REPORT INFORMATION
  Report Type: Report from Study
  Country: US (occurrence: US)
  Receive Date: 20120427
  Receipt Date: 20130723
  Transmission Date: 20140515
  Serious: Yes (Hospitalization)
  Sender: FDA-Public Use
  Company Number: US-ELI_LILLY_AND_COMPANY-US201204008234

PATIENT
  Age: 15 Year
  Sex: Female
  Weight: 44.2 kg

DRUGS (9)
  1. TADALAFIL [Suspect]
     Indication: PULMONARY ARTERIAL HYPERTENSION
     Dosage: 40 MG, QD
     Dates: start: 201006
  2. FLOLAN [Concomitant]
     Indication: PULMONARY ARTERIAL HYPERTENSION
     Dosage: 108 MG, QD
     Dates: start: 20100326
  3. SPIRONOLACTONE [Concomitant]
     Indication: PULMONARY HYPERTENSION
     Dosage: 25 MG, UNK
     Route: 048
     Dates: start: 201008
  4. DIGOXIN [Concomitant]
     Indication: PULMONARY HYPERTENSION
     Dosage: 0.125 MG, UNK
     Route: 048
     Dates: start: 20100326
  5. FUROSEMIDE [Concomitant]
     Indication: PULMONARY HYPERTENSION
     Dosage: 10 MG, UNK
     Route: 048
     Dates: start: 20100326
  6. GABAPENTIN [Concomitant]
     Indication: PAIN IN EXTREMITY
     Dosage: 300 MG, UNK
     Route: 048
     Dates: start: 201101
  7. OMEPRAZOLE [Concomitant]
     Indication: GASTROOESOPHAGEAL REFLUX PROPHYLAXIS
     Dosage: 20 MG, UNK
     Route: 048
     Dates: start: 201105
  8. SERTRALINE [Concomitant]
     Indication: DEPRESSION
     Dosage: 150 MG, UNK
     Route: 048
     Dates: start: 20070101
  9. LEVOCETIRIZINE DIHYDROCHLORIDE [Concomitant]
     Indication: HYPERSENSITIVITY
     Dosage: 5 MG, UNK
     Route: 048
     Dates: start: 201005

REACTIONS (1)
  - Pneumonia [Recovered/Resolved]
